FAERS Safety Report 8414133-6 (Version None)
Quarter: 2012Q2

REPORT INFORMATION
  Report Type: 
  Country: None (occurrence: None)
  Receive Date: 20120605
  Receipt Date: 20120524
  Transmission Date: 20120825
  Serious: Yes (Death, Hospitalization)
  Sender: FDA-Public Use
  Company Number: NL-CELGENEUS-114-21660-12042120

PATIENT
  Sex: Female
  Weight: 60 kg

DRUGS (13)
  1. METOPROLOL SUCCINATE [Concomitant]
     Dosage: 50 MILLIGRAM
     Route: 065
  2. PANTOPRAZOLE [Concomitant]
     Route: 065
  3. FENTANYL [Concomitant]
     Dosage: MCG/2DGN
     Route: 003
     Dates: start: 20120418, end: 20120422
  4. PROMOCARD [Concomitant]
     Dosage: 30 MILLIGRAM
     Route: 065
  5. ACID ACETYLSALICYLIC [Concomitant]
     Dosage: 80 MILLIGRAM
     Route: 065
  6. METOCLOPRAMIDE [Concomitant]
     Route: 065
  7. AMLODIPINE [Concomitant]
     Dosage: 5 MILLIGRAM
     Route: 065
  8. ATACAND [Concomitant]
     Dosage: 16 MILLIGRAM
     Route: 065
  9. DICLOFENAC SODIUM [Concomitant]
     Indication: PAIN
     Dosage: 75 MILLIGRAM
     Route: 065
  10. FENTANYL [Concomitant]
     Indication: PAIN
     Dosage: MCG/MM
     Route: 003
  11. ABRAXANE [Suspect]
     Indication: BREAST CANCER METASTATIC
     Dosage: 14.2857 MILLIGRAM/SQ. METER
     Route: 041
     Dates: start: 20120411, end: 20120507
  12. ACETAMINOPHEN [Concomitant]
     Indication: PAIN
     Route: 065
  13. FENTANYL [Concomitant]
     Dosage: MCG/2DGN
     Route: 003
     Dates: start: 20120423

REACTIONS (1)
  - BREAST CANCER [None]
